FAERS Safety Report 9631727 (Version 4)
Quarter: 2014Q3

REPORT INFORMATION
  Report Type: Spontaneous
  Country: US (occurrence: US)
  Receive Date: 20131018
  Receipt Date: 20140717
  Transmission Date: 20150326
  Serious: Yes (Hospitalization)
  Sender: FDA-Public Use
  Company Number: US-BAYER-2013-126381

PATIENT
  Age: 22 Year
  Sex: Female
  Weight: 53 kg

DRUGS (1)
  1. MIRENA [Suspect]
     Active Substance: LEVONORGESTREL
     Indication: CONTRACEPTION
     Dosage: 20 MCG/24HR, CONT
     Route: 015
     Dates: start: 20090310, end: 20100811

REACTIONS (12)
  - Injury [None]
  - Pelvic pain [None]
  - Salpingitis [None]
  - Fallopian tube disorder [None]
  - Device issue [None]
  - Emotional distress [None]
  - Pain [None]
  - Uterine perforation [None]
  - Ovarian cyst [None]
  - Dyspareunia [None]
  - Menorrhagia [None]
  - Abdominal adhesions [None]

NARRATIVE: CASE EVENT DATE: 200906
